FAERS Safety Report 8999724 (Version 1)
Quarter: 2013Q1

REPORT INFORMATION
  Report Type: Spontaneous
  Country: DE (occurrence: DE)
  Receive Date: 20130102
  Receipt Date: 20130102
  Transmission Date: 20140127
  Serious: Yes (Other)
  Sender: FDA-Public Use
  Company Number: DE-GLAXOSMITHKLINE-D0078262A

PATIENT
  Age: 0 Year
  Sex: 0
  Weight: 5.5 kg

DRUGS (1)
  1. ZOFRAN [Suspect]
     Dosage: 5MG SINGLE DOSE
     Route: 042
     Dates: start: 20121223, end: 20121223

REACTIONS (2)
  - Accidental exposure to product by child [Unknown]
  - Accidental exposure to product [Unknown]
